FAERS Safety Report 12138339 (Version 2)
Quarter: 2016Q1

REPORT INFORMATION
  Report Type: Report from Study
  Country: TN (occurrence: TN)
  Receive Date: 20160302
  Receipt Date: 20160310
  Transmission Date: 20160526
  Serious: Yes (Death)
  Sender: FDA-Public Use
  Company Number: PHHY2016TN023919

PATIENT
  Sex: Male

DRUGS (2)
  1. NILEVAR [Concomitant]
     Active Substance: NORETHANDROLONE
     Indication: APLASTIC ANAEMIA
     Route: 065
  2. EXJADE [Suspect]
     Active Substance: DEFERASIROX
     Indication: FANCONI SYNDROME ACQUIRED
     Dosage: 750 MG, QD (ONCE DAILY)
     Route: 048
     Dates: start: 20140107

REACTIONS (2)
  - Fanconi syndrome acquired [Fatal]
  - Disease progression [Fatal]
